FAERS Safety Report 18005227 (Version 1)
Quarter: 2020Q3

REPORT INFORMATION
  Report Type: Spontaneous
  Country: US (occurrence: US)
  Receive Date: 20200709
  Receipt Date: 20200709
  Transmission Date: 20201103
  Serious: No
  Sender: FDA-Public Use
  Company Number: None

PATIENT
  Age: 55 Year
  Sex: Female

DRUGS (1)
  1. ORENCIA [Suspect]
     Active Substance: ABATACEPT
     Route: 058
     Dates: start: 20190812

REACTIONS (4)
  - Arthralgia [None]
  - Therapy interrupted [None]
  - Arthritis [None]
  - Pain in extremity [None]

NARRATIVE: CASE EVENT DATE: 20200709
